FAERS Safety Report 23955371 (Version 4)
Quarter: 2024Q3

REPORT INFORMATION
  Report Type: Spontaneous
  Country: US (occurrence: US)
  Receive Date: 20240610
  Receipt Date: 20240826
  Transmission Date: 20241016
  Serious: Yes (Other)
  Sender: REGENERON
  Company Number: US-REGENERON PHARMACEUTICALS, INC.-2024-082028

PATIENT
  Sex: Male

DRUGS (2)
  1. EYLEA [Suspect]
     Active Substance: AFLIBERCEPT
     Indication: Neovascular age-related macular degeneration
     Dosage: UNK, TOTAL 1 DOSE INTO RIGHT EYE (FORMULATION: PFS GERRESHEIMER, STRENGTH: UNKNOWN)
     Route: 031
     Dates: start: 20240528, end: 20240528
  2. CORTISONE [Concomitant]
     Active Substance: CORTISONE
     Indication: Product used for unknown indication
     Dosage: DROPS

REACTIONS (2)
  - Blindness transient [Recovering/Resolving]
  - Eye infection staphylococcal [Not Recovered/Not Resolved]

NARRATIVE: CASE EVENT DATE: 20240101
